FAERS Safety Report 7762005-2 (Version None)
Quarter: 2011Q3

REPORT INFORMATION
  Report Type: 
  Country: None (occurrence: None)
  Receive Date: 20110920
  Receipt Date: 20110907
  Transmission Date: 20111222
  Serious: Yes (Other)
  Sender: FDA-Public Use
  Company Number: JP-ELI_LILLY_AND_COMPANY-JP201109002115

PATIENT
  Age: 85 Year
  Sex: Male

DRUGS (2)
  1. INSULIN [Concomitant]
     Route: 058
  2. FORTEO [Suspect]
     Dosage: UNK
     Route: 058
     Dates: start: 20110815

REACTIONS (1)
  - ASTHENIA [None]
